FAERS Safety Report 4875668-6 (Version None)
Quarter: 2006Q1

REPORT INFORMATION
  Report Type: 
  Country: None (occurrence: None)
  Receive Date: 20060105
  Receipt Date: 20051223
  Transmission Date: 20060701
  Serious: Yes (Congenital Anomaly)
  Sender: FDA-Public Use
  Company Number: GXKR2005CA02208

PATIENT
  Age: 9 Month
  Sex: Male
  Weight: 8.6 kg

DRUGS (6)
  1. FLUCONAZOLE [Suspect]
     Dosage: 800 MG, QD, TRANSPLACENTAL
     Route: 064
  2. EFAVIRENZ [Concomitant]
  3. NEVIRAPINE [Concomitant]
  4. METHADONE HCL [Concomitant]
  5. PENTAMIDINE (PENTAMIDINE) [Concomitant]
  6. SEPTRA [Concomitant]

REACTIONS (28)
  - ANOMALY OF EXTERNAL EAR CONGENITAL [None]
  - BACTERAEMIA [None]
  - BONE DISORDER [None]
  - CEREBRAL DISORDER [None]
  - CONGENITAL TORTICOLLIS [None]
  - CONTRAINDICATION TO MEDICAL TREATMENT [None]
  - CONVULSION NEONATAL [None]
  - CRANIOSYNOSTOSIS [None]
  - DEAFNESS BILATERAL [None]
  - DEVELOPMENTAL DELAY [None]
  - DRUG EXPOSURE DURING PREGNANCY [None]
  - DRUG WITHDRAWAL SYNDROME NEONATAL [None]
  - EXOPHTHALMOS [None]
  - FACIAL DYSMORPHISM [None]
  - GRAND MAL CONVULSION [None]
  - JOINT CONTRACTURE [None]
  - KIDNEY DUPLEX [None]
  - KYPHOSIS CONGENITAL [None]
  - MULTIPLE CONGENITAL ABNORMALITIES [None]
  - MUSCLE CONTRACTURE [None]
  - NEONATAL DISORDER [None]
  - PILONIDAL CYST CONGENITAL [None]
  - PNEUMONIA STREPTOCOCCAL [None]
  - PREMATURE CLOSURE OF CRANIAL SUTURES [None]
  - SYNOSTOSIS [None]
  - TERATOGENICITY [None]
  - TOE DEFORMITY [None]
  - UPPER LIMB DEFORMITY [None]
